FAERS Safety Report 20660214 (Version 4)
Quarter: 2022Q3

REPORT INFORMATION
  Report Type: Spontaneous
  Country: US (occurrence: US)
  Receive Date: 20220331
  Receipt Date: 20220916
  Transmission Date: 20221026
  Serious: No
  Sender: FDA-Public Use
  Company Number: US-MYLANLABS-2022M1020399

PATIENT
  Age: 61 Year
  Sex: Male
  Weight: 82.549 kg

DRUGS (3)
  1. SEMGLEE (INSULIN GLARGINE-YFGN) [Suspect]
     Active Substance: INSULIN GLARGINE-YFGN
     Indication: Type 2 diabetes mellitus
     Dosage: 40 INTERNATIONAL UNIT, QD
     Route: 058
     Dates: start: 202204
  2. SEMGLEE (INSULIN GLARGINE-YFGN) [Suspect]
     Active Substance: INSULIN GLARGINE-YFGN
     Dosage: 40 INTERNATIONAL UNIT, QD
     Route: 058
  3. SEMGLEE (INSULIN GLARGINE-YFGN) [Suspect]
     Active Substance: INSULIN GLARGINE-YFGN
     Dosage: 40 UNITS, AM
     Route: 058

REACTIONS (6)
  - Device mechanical issue [Unknown]
  - Device failure [Unknown]
  - Device breakage [Unknown]
  - Product administration error [Unknown]
  - Weight increased [Unknown]
  - Product leakage [Unknown]

NARRATIVE: CASE EVENT DATE: 20220401
